FAERS Safety Report 9012005 (Version 1)
Quarter: 2012Q4

REPORT INFORMATION
  Report Type: Spontaneous
  Country: FR (occurrence: None)
  Receive Date: 20121228
  Receipt Date: 20121228
  Transmission Date: 20130627
  Serious: Yes (Death)
  Sender: FDA-Public Use
  Company Number: DSA_61597_2012

PATIENT

DRUGS (4)
  1. FLUOROURACIL [Suspect]
     Indication: COLON CANCER
  2. OXALIPLATIN [Suspect]
     Indication: COLON CANCER
  3. LEUCOVORIN [Suspect]
     Indication: COLON CANCER
  4. BEVACIZUMAB [Suspect]
     Indication: COLON CANCER

REACTIONS (1)
  - Lower gastrointestinal haemorrhage [None]
